FAERS Safety Report 8327320-2 (Version None)
Quarter: 2012Q2

REPORT INFORMATION
  Report Type: 
  Country: None (occurrence: None)
  Receive Date: 20120502
  Receipt Date: 20120425
  Transmission Date: 20120825
  Serious: No
  Sender: FDA-Public Use
  Company Number: US-BIOGENIDEC-2010BI041333

PATIENT
  Age: 47 Year
  Sex: Male

DRUGS (1)
  1. TYSABRI [Suspect]
     Indication: MULTIPLE SCLEROSIS
     Route: 042
     Dates: start: 20101104

REACTIONS (8)
  - MUSCULOSKELETAL STIFFNESS [None]
  - FATIGUE [None]
  - MUSCULAR WEAKNESS [None]
  - BALANCE DISORDER [None]
  - NASOPHARYNGITIS [None]
  - MULTIPLE SCLEROSIS RELAPSE [None]
  - CHEST PAIN [None]
  - DRUG EFFECT DELAYED [None]
